FAERS Safety Report 5933056-5 (Version None)
Quarter: 2008Q4

REPORT INFORMATION
  Report Type: 
  Country: None (occurrence: None)
  Receive Date: 20081028
  Receipt Date: 20081015
  Transmission Date: 20090506
  Serious: Yes (Life-Threatening, Hospitalization, Other)
  Sender: FDA-Public Use
  Company Number: US-ELI_LILLY_AND_COMPANY-US200810003954

PATIENT
  Sex: Female

DRUGS (4)
  1. FORTEO [Suspect]
     Indication: OSTEOPOROSIS
     Dates: start: 20070101, end: 20080307
  2. FORTEO [Suspect]
     Dates: start: 20080601
  3. ARIMIDEX [Concomitant]
  4. ESTROGEN NOS [Concomitant]

REACTIONS (30)
  - ANAEMIA [None]
  - ARTHRALGIA [None]
  - BLADDER PAIN [None]
  - BLOOD POTASSIUM DECREASED [None]
  - BLOOD PRESSURE DECREASED [None]
  - BLOOD URINE PRESENT [None]
  - BONE DENSITY DECREASED [None]
  - CATHETER RELATED COMPLICATION [None]
  - CYST [None]
  - CYSTITIS [None]
  - DEHYDRATION [None]
  - DYSPHAGIA [None]
  - FEAR [None]
  - FEELING COLD [None]
  - FOAMING AT MOUTH [None]
  - FOREIGN BODY TRAUMA [None]
  - GASTROINTESTINAL HAEMORRHAGE [None]
  - LOSS OF CONSCIOUSNESS [None]
  - MOBILITY DECREASED [None]
  - OESOPHAGEAL SPASM [None]
  - OVARIAN ENLARGEMENT [None]
  - OXYGEN SATURATION DECREASED [None]
  - PAIN [None]
  - PAIN IN EXTREMITY [None]
  - PEPTIC ULCER [None]
  - PROCEDURAL PAIN [None]
  - TOXIC SHOCK SYNDROME [None]
  - TREMOR [None]
  - URINARY TRACT INFECTION [None]
  - VOMITING [None]
